FAERS Safety Report 25823908 (Version 2)
Quarter: 2025Q4

REPORT INFORMATION
  Report Type: Report from Study
  Country: US (occurrence: US)
  Receive Date: 20250919
  Receipt Date: 20251231
  Transmission Date: 20260118
  Serious: Yes (Hospitalization)
  Sender: ALEXION PHARMACEUTICALS
  Company Number: US-AstraZeneca-CH-00946794A

PATIENT
  Sex: Male

DRUGS (4)
  1. RAVULIZUMAB [Suspect]
     Active Substance: RAVULIZUMAB
     Indication: Myasthenia gravis
     Route: 065
  2. PREDNISONE [Concomitant]
     Active Substance: PREDNISONE
     Dosage: 20 MILLIGRAM
     Route: 065
  3. PREDNISONE [Concomitant]
     Active Substance: PREDNISONE
     Dosage: 5 MILLIGRAM
     Route: 065
  4. PREDNISONE [Concomitant]
     Active Substance: PREDNISONE
     Dosage: 15 MILLIGRAM
     Route: 065

REACTIONS (3)
  - Abscess [Unknown]
  - Pneumonia [Unknown]
  - Dyspnoea [Unknown]
